FAERS Safety Report 10436177 (Version 2)
Quarter: 2014Q4

REPORT INFORMATION
  Report Type: Spontaneous
  Country: IT (occurrence: IT)
  Receive Date: 20140908
  Receipt Date: 20141105
  Transmission Date: 20150528
  Serious: Yes (Hospitalization)
  Sender: FDA-Public Use
  Company Number: IT-SA-2014SA119045

PATIENT
  Age: 79 Year
  Sex: Female

DRUGS (11)
  1. NICETILE [Concomitant]
     Active Substance: ACETYLCARNITINE HYDROCHLORIDE
  2. CARDIOASPIRIN [Concomitant]
     Active Substance: ASPIRIN
  3. LUVION [Concomitant]
     Active Substance: CANRENONE
  4. EFIENT [Concomitant]
     Active Substance: PRASUGREL HYDROCHLORIDE
  5. MAGALDRATE [Concomitant]
     Active Substance: MAGALDRATE
  6. LASIX [Suspect]
     Active Substance: FUROSEMIDE
     Indication: HYPERTENSIVE HEART DISEASE
     Route: 048
     Dates: start: 20130101, end: 20140611
  7. TORVAST [Concomitant]
     Active Substance: ATORVASTATIN
  8. LUCEN [Concomitant]
     Active Substance: ESOMEPRAZOLE
  9. MACROGOL [Concomitant]
     Active Substance: POLYETHYLENE GLYCOLS
  10. CARDICOR [Concomitant]
     Active Substance: BISOPROLOL
  11. ZANEDIP [Concomitant]
     Active Substance: LERCANIDIPINE HYDROCHLORIDE

REACTIONS (3)
  - Disorientation [Recovering/Resolving]
  - Dehydration [Recovering/Resolving]
  - Hyponatraemia [Recovering/Resolving]

NARRATIVE: CASE EVENT DATE: 20140611
